FAERS Safety Report 12511381 (Version 1)
Quarter: 2016Q2

REPORT INFORMATION
  Report Type: Spontaneous
  Country: US (occurrence: US)
  Receive Date: 20160629
  Receipt Date: 20160629
  Transmission Date: 20160815
  Serious: No
  Sender: FDA-Public Use
  Company Number: US-EAGLE PHARMACEUTICALS, INC.-US-2016EAG000034

PATIENT
  Age: 50 Year
  Sex: Male

DRUGS (1)
  1. BENDEKA [Suspect]
     Active Substance: BENDAMUSTINE HYDROCHLORIDE
     Indication: LYMPHOMA
     Dosage: 250 MG, INFUSION GIVEN FOR 30 MINUTES
     Route: 042

REACTIONS (3)
  - Burning sensation [Unknown]
  - Limb discomfort [Unknown]
  - Musculoskeletal stiffness [Unknown]
